FAERS Safety Report 9745533 (Version 1)
Quarter: 2013Q4

REPORT INFORMATION
  Report Type: Spontaneous
  Country: US (occurrence: None)
  Receive Date: 20131205
  Receipt Date: 20131205
  Transmission Date: 20140711
  Serious: Yes (Other)
  Sender: FDA-Public Use
  Company Number: None

PATIENT
  Age: 46 Year
  Sex: Male
  Weight: 78.9 kg

DRUGS (1)
  1. IOPAMIDOL [Suspect]
     Indication: SCAN WITH CONTRAST
     Route: 042
     Dates: start: 20131023

REACTIONS (9)
  - Erythema [None]
  - Urticaria [None]
  - Rash macular [None]
  - Pruritus [None]
  - Contrast media reaction [None]
  - Drug hypersensitivity [None]
  - Drug intolerance [None]
  - Flushing [None]
  - Skin warm [None]
